FAERS Safety Report 14008422 (Version 1)
Quarter: 2017Q3

REPORT INFORMATION
  Report Type: Spontaneous
  Country: US (occurrence: US)
  Receive Date: 20170925
  Receipt Date: 20170925
  Transmission Date: 20171128
  Serious: Yes (Hospitalization, Disabling)
  Sender: FDA-Public Use
  Company Number: None

PATIENT
  Sex: Female
  Weight: 79.2 kg

DRUGS (8)
  1. VITAMIN [Concomitant]
     Active Substance: VITAMINS
  2. MAKENA [Suspect]
     Active Substance: HYDROXYPROGESTERONE CAPROATE
     Indication: PREMATURE LABOUR
     Dosage: ?          OTHER FREQUENCY:WEEKLY;?
     Route: 030
     Dates: start: 20151015, end: 20160301
  3. LOW DOSE ASPIRIN [Concomitant]
     Active Substance: ASPIRIN
  4. MAKENA [Suspect]
     Active Substance: HYDROXYPROGESTERONE CAPROATE
     Indication: PROPHYLAXIS
     Dosage: ?          OTHER FREQUENCY:WEEKLY;?
     Route: 030
     Dates: start: 20151015, end: 20160301
  5. METFORMIN [Concomitant]
     Active Substance: METFORMIN HYDROCHLORIDE
  6. HUMALOG [Concomitant]
     Active Substance: INSULIN LISPRO
  7. BASAGLAR [Concomitant]
     Active Substance: INSULIN GLARGINE
  8. TRULICITY [Concomitant]
     Active Substance: DULAGLUTIDE

REACTIONS (4)
  - Vision blurred [None]
  - Fungal infection [None]
  - Type 1 diabetes mellitus [None]
  - Pancreatic enzymes decreased [None]

NARRATIVE: CASE EVENT DATE: 20151101
